FAERS Safety Report 10189562 (Version 1)
Quarter: 2014Q2

REPORT INFORMATION
  Report Type: Spontaneous
  Country: US (occurrence: US)
  Receive Date: 20140522
  Receipt Date: 20140522
  Transmission Date: 20141212
  Serious: No
  Sender: FDA-Public Use
  Company Number: US-AMGEN INC.-USASP2014031495

PATIENT
  Age: 89 Year
  Sex: Female

DRUGS (2)
  1. PROLIA [Suspect]
     Indication: OSTEOPOROSIS
     Dosage: UNK
     Route: 065
     Dates: start: 2013
  2. PRADAXA [Concomitant]

REACTIONS (7)
  - Skin disorder [Unknown]
  - Rash maculo-papular [Unknown]
  - Pain of skin [Unknown]
  - Bone pain [Unknown]
  - Rash pruritic [Unknown]
  - Scar [Unknown]
  - Rash [Unknown]
